FAERS Safety Report 4473885-0 (Version None)
Quarter: 2004Q4

REPORT INFORMATION
  Report Type: 
  Country: None (occurrence: None)
  Receive Date: 20041008
  Receipt Date: 20041008
  Transmission Date: 20050328
  Serious: Yes (Other)
  Sender: FDA-Public Use
  Company Number: None

PATIENT
  Age: 44 Year
  Sex: Female
  Weight: 60.782 kg

DRUGS (1)
  1. VIOXX [Suspect]
     Indication: INFLAMMATION
     Dosage: 1  PER DAY  ORAL
     Route: 048
     Dates: start: 20040323, end: 20040420

REACTIONS (4)
  - DIZZINESS [None]
  - VISION BLURRED [None]
  - VISUAL ACUITY REDUCED [None]
  - VITREOUS FLOATERS [None]
